FAERS Safety Report 22694837 (Version 3)
Quarter: 2024Q4

REPORT INFORMATION
  Report Type: Report from Study
  Country: US (occurrence: US)
  Receive Date: 20230712
  Receipt Date: 20241104
  Transmission Date: 20250115
  Serious: No
  Sender: NOVARTIS
  Company Number: US-002147023-NVSC2023US154125

PATIENT
  Sex: Male

DRUGS (1)
  1. ENTRESTO [Suspect]
     Active Substance: SACUBITRIL\VALSARTAN
     Indication: Product used for unknown indication
     Dosage: UNK
     Route: 065

REACTIONS (7)
  - Arthropod bite [Unknown]
  - Wound [Unknown]
  - Ejection fraction decreased [Unknown]
  - Fatigue [Unknown]
  - Limb discomfort [Unknown]
  - Cardiac disorder [Unknown]
  - Blood viscosity increased [Unknown]
